FAERS Safety Report 13793164 (Version 1)
Quarter: 2017Q3

REPORT INFORMATION
  Report Type: Spontaneous
  Country: US (occurrence: US)
  Receive Date: 20170726
  Receipt Date: 20170726
  Transmission Date: 20171127
  Serious: Yes (Hospitalization)
  Sender: FDA-Public Use
  Company Number: None

PATIENT
  Age: 68 Year
  Sex: Male
  Weight: 98.47 kg

DRUGS (2)
  1. VANCOMYCIN [Suspect]
     Active Substance: VANCOMYCIN
     Indication: CARDIAC OPERATION
     Route: 042
     Dates: start: 20170712, end: 20170712
  2. GENTAMICIN. [Suspect]
     Active Substance: GENTAMICIN
     Indication: CARDIAC OPERATION
     Route: 042
     Dates: start: 20170712, end: 20170712

REACTIONS (7)
  - Oropharyngeal pain [None]
  - Oral dysaesthesia [None]
  - Angioedema [None]
  - Rash [None]
  - Drug hypersensitivity [None]
  - Urticaria [None]
  - Respiratory disorder [None]

NARRATIVE: CASE EVENT DATE: 20170712
